FAERS Safety Report 10735884 (Version 1)
Quarter: 2015Q1

REPORT INFORMATION
  Report Type: Spontaneous
  Country: US (occurrence: US)
  Receive Date: 20150126
  Receipt Date: 20150126
  Transmission Date: 20150721
  Serious: Yes (Other)
  Sender: FDA-Public Use
  Company Number: US-RB-072259-15

PATIENT
  Age: 57 Year
  Sex: Female

DRUGS (2)
  1. MUCINEX [Suspect]
     Active Substance: GUAIFENESIN
     Indication: INFLUENZA LIKE ILLNESS
     Route: 065
     Dates: start: 20150105
  2. MUCINEX [Suspect]
     Active Substance: GUAIFENESIN
     Indication: INFLUENZA LIKE ILLNESS
     Route: 065
     Dates: start: 20150105

REACTIONS (2)
  - Epistaxis [Recovered/Resolved]
  - Nasal dryness [Not Recovered/Not Resolved]

NARRATIVE: CASE EVENT DATE: 201501
